FAERS Safety Report 9189255 (Version 2)
Quarter: 2013Q1

REPORT INFORMATION
  Report Type: Spontaneous
  Country: GB (occurrence: GB)
  Receive Date: 20130326
  Receipt Date: 20130330
  Transmission Date: 20140127
  Serious: Yes (Other)
  Sender: FDA-Public Use
  Company Number: GB-ACCORD-016895

PATIENT
  Age: 68 Year
  Sex: Female
  Weight: 53 kg

DRUGS (3)
  1. SIMVASTATIN [Concomitant]
     Indication: HYPERLIPIDAEMIA
     Dosage: AT NIGHT
     Route: 048
  2. FLECAINIDE [Concomitant]
     Indication: ARRHYTHMIA
     Route: 048
  3. ANASTROZOLE [Suspect]
     Indication: BREAST CANCER FEMALE
     Dosage: STILL ON
     Route: 048
     Dates: start: 201106

REACTIONS (2)
  - Dementia Alzheimer^s type [Unknown]
  - Liver function test abnormal [Unknown]
